FAERS Safety Report 16559443 (Version 3)
Quarter: 2019Q3

REPORT INFORMATION
  Report Type: Report from Study
  Country: JP (occurrence: JP)
  Receive Date: 20190711
  Receipt Date: 20190816
  Transmission Date: 20191004
  Serious: Yes (Death)
  Sender: FDA-Public Use
  Company Number: JP-ACTELION-A-CH2018-184252

PATIENT
  Age: 77 Year
  Sex: Male

DRUGS (9)
  1. AZOSEMIDE [Concomitant]
     Active Substance: AZOSEMIDE
  2. NEXIUM [Concomitant]
     Active Substance: ESOMEPRAZOLE MAGNESIUM
  3. PRANLUKAST [Concomitant]
     Active Substance: PRANLUKAST
  4. ALFACALCIDOL [Concomitant]
     Active Substance: ALFACALCIDOL
  5. PREDONINE [Concomitant]
     Active Substance: PREDNISOLONE
  6. OXYGEN. [Concomitant]
     Active Substance: OXYGEN
  7. DAIPHEN [Concomitant]
     Active Substance: SULFAMETHOXAZOLE\TRIMETHOPRIM
  8. SPIRONOLACTONE. [Concomitant]
     Active Substance: SPIRONOLACTONE
  9. OPSUMIT [Suspect]
     Active Substance: MACITENTAN
     Indication: PULMONARY ARTERIAL HYPERTENSION
     Dosage: 10 MG, QD
     Route: 048
     Dates: start: 20180319, end: 20181109

REACTIONS (4)
  - Nephrogenic anaemia [Not Recovered/Not Resolved]
  - Concomitant disease progression [Not Recovered/Not Resolved]
  - Pulmonary hypertension [Fatal]
  - Sepsis [Fatal]

NARRATIVE: CASE EVENT DATE: 20180521
